FAERS Safety Report 12231158 (Version 2)
Quarter: 2016Q3

REPORT INFORMATION
  Report Type: Spontaneous
  Country: DE (occurrence: DE)
  Receive Date: 20160401
  Receipt Date: 20160715
  Transmission Date: 20161109
  Serious: Yes (Hospitalization)
  Sender: FDA-Public Use
  Company Number: DE-FRESENIUS KABI-FK201601615

PATIENT
  Age: 77 Year
  Sex: Male
  Weight: 78 kg

DRUGS (6)
  1. 5 FU [Concomitant]
     Active Substance: FLUOROURACIL
     Indication: METASTASES TO LIVER
     Route: 041
     Dates: start: 20160210, end: 20160224
  2. DEXAMETASON [Concomitant]
     Active Substance: DEXAMETHASONE
     Indication: METASTASES TO LIVER
     Route: 041
     Dates: start: 20160210, end: 20160224
  3. AVASTIN [Concomitant]
     Active Substance: BEVACIZUMAB
     Indication: METASTASES TO LIVER
     Route: 041
     Dates: start: 20160210, end: 20160224
  4. OXALIPLATIN (MANUFACTURER UNKNOWN) [Suspect]
     Active Substance: OXALIPLATIN
     Indication: METASTASES TO LIVER
     Route: 041
     Dates: start: 20160210, end: 20160224
  5. FOLINIC ACID [Concomitant]
     Active Substance: LEUCOVORIN
     Indication: METASTASES TO LIVER
     Route: 041
     Dates: start: 20160210, end: 20160224
  6. GRANISETRON [Concomitant]
     Active Substance: GRANISETRON
     Indication: METASTASES TO LIVER
     Route: 041
     Dates: start: 20160210, end: 20160224

REACTIONS (1)
  - Seizure [Unknown]

NARRATIVE: CASE EVENT DATE: 20160224
